FAERS Safety Report 18599095 (Version 2)
Quarter: 2021Q1

REPORT INFORMATION
  Report Type: Spontaneous
  Country: DE (occurrence: DE)
  Receive Date: 20201210
  Receipt Date: 20210224
  Transmission Date: 20210419
  Serious: Yes (Death, Other)
  Sender: FDA-Public Use
  Company Number: DE-AMGEN-DEUSP2020144768

PATIENT

DRUGS (1)
  1. PROLIA [Suspect]
     Active Substance: DENOSUMAB
     Indication: PRODUCT USED FOR UNKNOWN INDICATION
     Dosage: UNK
     Route: 065

REACTIONS (19)
  - Feeding tube user [Unknown]
  - Tooth disorder [Unknown]
  - Sensory disturbance [Unknown]
  - Loss of personal independence in daily activities [Unknown]
  - Malaise [Unknown]
  - Weight decreased [Unknown]
  - Pain [Unknown]
  - Dysphagia [Unknown]
  - Impaired healing [Unknown]
  - Disturbance in social behaviour [Unknown]
  - Dyskinesia [Unknown]
  - Death [Fatal]
  - Speech disorder [Unknown]
  - Dry mouth [Unknown]
  - Cough [Unknown]
  - Weight increased [Unknown]
  - Saliva altered [Unknown]
  - Nutritional supplementation [Unknown]
  - Osteonecrosis of jaw [Unknown]
